FAERS Safety Report 8285660-X (Version None)
Quarter: 2012Q2

REPORT INFORMATION
  Report Type: 
  Country: None (occurrence: None)
  Receive Date: 20120413
  Receipt Date: 20110929
  Transmission Date: 20120825
  Serious: Yes (Other)
  Sender: FDA-Public Use
  Company Number: US-ASTRAZENECA-2011SE58513

PATIENT
  Sex: Female

DRUGS (3)
  1. NEXIUM [Suspect]
     Indication: GASTROOESOPHAGEAL REFLUX DISEASE
     Route: 048
  2. PREDNISONE TAB [Concomitant]
     Indication: EAR INFECTION
  3. AMOXICILLIN [Concomitant]
     Indication: EAR INFECTION

REACTIONS (3)
  - EAR INFECTION [None]
  - WRIST FRACTURE [None]
  - HYPOTENSION [None]
